FAERS Safety Report 6728904-5 (Version None)
Quarter: 2010Q2

REPORT INFORMATION
  Report Type: 
  Country: None (occurrence: None)
  Receive Date: 20100517
  Receipt Date: 20100302
  Transmission Date: 20101027
  Serious: No
  Sender: FDA-Public Use
  Company Number: US-ABBOTT-10P-163-0630296-00

PATIENT
  Age: 49 Year
  Sex: Female

DRUGS (5)
  1. SIMCOR [Suspect]
     Indication: BLOOD CHOLESTEROL INCREASED
     Dosage: 1 - 500/20MG TABLET DAILY
     Dates: start: 20100218, end: 20100228
  2. CHANTIX [Concomitant]
     Indication: SMOKING CESSATION THERAPY
     Dates: start: 20100202
  3. LACTATE [Concomitant]
     Indication: LACTOSE INTOLERANCE
  4. FISH OIL [Concomitant]
     Indication: MEDICAL DIET
  5. VITAMIN D [Concomitant]
     Indication: VITAMIN SUPPLEMENTATION
     Dates: start: 20100218

REACTIONS (4)
  - CHILLS [None]
  - HYPERVENTILATION [None]
  - SKIN BURNING SENSATION [None]
  - SWELLING FACE [None]
